FAERS Safety Report 9858410 (Version 1)
Quarter: 2014Q1

REPORT INFORMATION
  Report Type: Spontaneous
  Country: US (occurrence: None)
  Receive Date: 20140130
  Receipt Date: 20140130
  Transmission Date: 20141002
  Serious: Yes (Other)
  Sender: FDA-Public Use
  Company Number: None

PATIENT
  Age: 60 Day
  Sex: Female
  Weight: 64.41 kg

DRUGS (1)
  1. ARESTIN [Suspect]
     Indication: GINGIVAL DISORDER

REACTIONS (3)
  - Abdominal pain [None]
  - Diarrhoea [None]
  - Vomiting [None]
